FAERS Safety Report 17489157 (Version 1)
Quarter: 2020Q1

REPORT INFORMATION
  Report Type: Spontaneous
  Country: US (occurrence: US)
  Receive Date: 20200220
  Receipt Date: 20200220
  Transmission Date: 20200409
  Serious: Yes (Hospitalization)
  Sender: FDA-Public Use
  Company Number: None

PATIENT
  Sex: Male
  Weight: 105.23 kg

DRUGS (2)
  1. LISINOPRIL (LISINOPRIL 2.5MG TAB.UD) [Suspect]
     Active Substance: LISINOPRIL
     Route: 048
     Dates: start: 20140715
  2. EMPAGLIFLOZIN (EMPAGLIFLOZIN 25MG TAB) [Suspect]
     Active Substance: EMPAGLIFLOZIN
     Indication: DIABETES MELLITUS
     Route: 048
     Dates: start: 20181015, end: 20190821

REACTIONS (1)
  - Hypotension [None]

NARRATIVE: CASE EVENT DATE: 20190821
